FAERS Safety Report 10178083 (Version 1)
Quarter: 2014Q2

REPORT INFORMATION
  Report Type: Spontaneous
  Country: CA (occurrence: CA)
  Receive Date: 20140518
  Receipt Date: 20140518
  Transmission Date: 20141212
  Serious: Yes (Other)
  Sender: FDA-Public Use
  Company Number: CA-009507513-1405CAN004722

PATIENT
  Age: 81 Year
  Sex: Male

DRUGS (9)
  1. PRINIVIL [Suspect]
     Dosage: 2.5 MG, UNK
     Route: 048
  2. FUROSEMIDE [Suspect]
     Route: 065
  3. LISINOPRIL [Suspect]
     Route: 048
  4. WARFARIN [Suspect]
     Route: 065
  5. ASPIRIN [Suspect]
     Route: 065
  6. ALLOPURINOL [Suspect]
     Route: 065
  7. CLONAZEPAM [Suspect]
     Route: 065
  8. EPOETIN ALFA [Suspect]
     Route: 042
  9. HYDRALAZINE [Concomitant]
     Route: 065

REACTIONS (5)
  - Device interaction [Unknown]
  - Abdominal pain [Unknown]
  - Diarrhoea [Unknown]
  - Hypersensitivity [Unknown]
  - Hypotension [Unknown]
